FAERS Safety Report 15918906 (Version 2)
Quarter: 2019Q1

REPORT INFORMATION
  Report Type: Spontaneous
  Country: JP (occurrence: JP)
  Receive Date: 20190205
  Receipt Date: 20190207
  Transmission Date: 20190417
  Serious: Yes (Other)
  Sender: FDA-Public Use
  Company Number: JP-BAYER-2019-024468

PATIENT
  Age: 78 Year
  Sex: Male

DRUGS (2)
  1. XOFIGO [Suspect]
     Active Substance: RADIUM RA-223 DICHLORIDE
     Indication: METASTASES TO BONE
     Dosage: 1 DF, Q1MON, 1 VIAL
     Route: 042
     Dates: start: 20181122, end: 20181220
  2. XOFIGO [Suspect]
     Active Substance: RADIUM RA-223 DICHLORIDE
     Indication: HORMONE-REFRACTORY PROSTATE CANCER

REACTIONS (2)
  - Metastasis [None]
  - Hormone-refractory prostate cancer [Not Recovered/Not Resolved]

NARRATIVE: CASE EVENT DATE: 20181220
